FAERS Safety Report 5320506-0 (Version None)
Quarter: 2007Q1

REPORT INFORMATION
  Report Type: 
  Country: None (occurrence: None)
  Receive Date: 20070215
  Receipt Date: 20060803
  Transmission Date: 20070707
  Serious: Yes (Other)
  Sender: FDA-Public Use
  Company Number: MC200600541

PATIENT
  Age: 75 Year
  Sex: Male
  Weight: 87 kg

DRUGS (3)
  1. ANGIOMAX [Suspect]
     Dates: start: 20060801
  2. MIDAZOLAM HCL [Concomitant]
  3. FENTANYL [Concomitant]

REACTIONS (1)
  - BRADYCARDIA [None]
